FAERS Safety Report 6108652-5 (Version None)
Quarter: 2009Q1

REPORT INFORMATION
  Report Type: 
  Country: None (occurrence: None)
  Receive Date: 20090305
  Receipt Date: 20090223
  Transmission Date: 20090719
  Serious: Yes (Disabling)
  Sender: FDA-Public Use
  Company Number: OSCN-NO-0902S-0106

PATIENT
  Age: 77 Year
  Sex: Male

DRUGS (11)
  1. OMNISCAN [Suspect]
     Indication: DRUG USE FOR UNKNOWN INDICATION
     Dosage: 40 ML, SINGLE DOSE, I.V.
     Route: 042
     Dates: start: 20020228, end: 20020228
  2. ERYTHROPOIETIN (EPREX) [Concomitant]
  3. IRON PREPARATIONS (JERNKUR) [Concomitant]
  4. ALFACALCIDOL (ETALPHA)  F [Concomitant]
  5. FENOTEROL  (BERODUAL) [Concomitant]
  6. MIANSERIN HYDROCHLORIDE (TOLMIN) [Concomitant]
  7. ACETYLSALICYLIC ACID (MAGNYL) [Concomitant]
  8. ZOCOR [Concomitant]
  9. PLENDIL [Concomitant]
  10. FUROSEMIDE (FUROSEMID) [Concomitant]
  11. CALCIUM ACETATE (PHOS-EX) [Concomitant]

REACTIONS (2)
  - HAEMODIALYSIS [None]
  - NEPHROGENIC SYSTEMIC FIBROSIS [None]
